FAERS Safety Report 6463981-0 (Version None)
Quarter: 2009Q4

REPORT INFORMATION
  Report Type: 
  Country: None (occurrence: None)
  Receive Date: 20091201
  Receipt Date: 20091124
  Transmission Date: 20100525
  Serious: Yes (Other)
  Sender: FDA-Public Use
  Company Number: US-ROCHE-670897

PATIENT
  Sex: Female

DRUGS (4)
  1. MYCOPHENOLATE MOFETIL [Suspect]
     Route: 065
     Dates: start: 20061122
  2. CYCLOSPORINE [Suspect]
     Dosage: DOSE FORM PER PROTOCOL
     Route: 048
     Dates: start: 20061123
  3. PREDNISONE TAB [Suspect]
     Route: 065
     Dates: start: 20061126
  4. NORVASC [Concomitant]
     Dates: start: 20061123

REACTIONS (1)
  - SQUAMOUS CELL CARCINOMA OF SKIN [None]
